FAERS Safety Report 5755680-5 (Version None)
Quarter: 2008Q2

REPORT INFORMATION
  Report Type: 
  Country: None (occurrence: None)
  Receive Date: 20080602
  Receipt Date: 20080528
  Transmission Date: 20081010
  Serious: Yes (Other)
  Sender: FDA-Public Use
  Company Number: GB-ASTRAZENECA-2008GB00741

PATIENT
  Age: 776 Month
  Sex: Female
  Weight: 89 kg

DRUGS (3)
  1. ARIMIDEX [Suspect]
     Route: 048
     Dates: start: 20060201
  2. LANSOPRAZOLE [Concomitant]
  3. CALCICHEW D3 [Concomitant]
     Indication: OSTEOPOROSIS
     Route: 048
     Dates: start: 20060701

REACTIONS (2)
  - CHEST DISCOMFORT [None]
  - PHARYNGOLARYNGEAL PAIN [None]
